FAERS Safety Report 18261945 (Version 1)
Quarter: 2020Q3

REPORT INFORMATION
  Report Type: Spontaneous
  Country: FR (occurrence: FR)
  Receive Date: 20200914
  Receipt Date: 20200914
  Transmission Date: 20201103
  Serious: Yes (Other)
  Sender: FDA-Public Use
  Company Number: FR-ASTRAZENECA-2020SF14622

PATIENT
  Age: 66 Year
  Sex: Female

DRUGS (5)
  1. IBRANCE [Suspect]
     Active Substance: PALBOCICLIB
     Indication: NEOPLASM RECURRENCE
     Dosage: 75 MG, CYCLIC (DAILY CYCLIC 21 DAYS FOLLOWED BY 15 DAYS OFF INSTEAD OF 1 WEEK)
     Route: 048
  2. FASLODEX [Suspect]
     Active Substance: FULVESTRANT
     Indication: BREAST CANCER
     Dosage: UNK
     Route: 030
  3. IBRANCE [Suspect]
     Active Substance: PALBOCICLIB
     Indication: LYMPHADENOPATHY
     Dosage: 75 MG, CYCLIC (DAILY CYCLIC 21 DAYS FOLLOWED BY 15 DAYS OFF INSTEAD OF 1 WEEK)
     Route: 048
  4. FASLODEX [Suspect]
     Active Substance: FULVESTRANT
     Indication: LYMPHADENOPATHY
     Dosage: UNK
     Route: 030
  5. IBRANCE [Suspect]
     Active Substance: PALBOCICLIB
     Indication: BREAST CANCER
     Dosage: 75 MG, CYCLIC (DAILY CYCLIC 21 DAYS FOLLOWED BY 15 DAYS OFF INSTEAD OF 1 WEEK)
     Route: 048

REACTIONS (3)
  - Respiratory failure [Unknown]
  - Loose tooth [Unknown]
  - White blood cell count decreased [Unknown]
